FAERS Safety Report 13653130 (Version 1)
Quarter: 2017Q2

REPORT INFORMATION
  Report Type: Spontaneous
  Country: US (occurrence: US)
  Receive Date: 20170614
  Receipt Date: 20170614
  Transmission Date: 20170830
  Serious: Yes (Hospitalization, Other)
  Sender: FDA-Public Use
  Company Number: US-ROCHE-1446900

PATIENT
  Sex: Female

DRUGS (1)
  1. XELODA [Suspect]
     Active Substance: CAPECITABINE
     Indication: PRODUCT USED FOR UNKNOWN INDICATION
     Route: 048
     Dates: start: 20140729

REACTIONS (9)
  - Hyperhidrosis [Unknown]
  - Weight decreased [Unknown]
  - Tremor [Unknown]
  - Decreased appetite [Not Recovered/Not Resolved]
  - Nausea [Unknown]
  - Feeling of body temperature change [Unknown]
  - Dehydration [Unknown]
  - Asthenia [Unknown]
  - Vomiting [Not Recovered/Not Resolved]
